FAERS Safety Report 6645451-X (Version None)
Quarter: 2010Q1

REPORT INFORMATION
  Report Type: 
  Country: None (occurrence: None)
  Receive Date: 20100322
  Receipt Date: 20100318
  Transmission Date: 20100710
  Serious: Yes (Life-Threatening, Hospitalization)
  Sender: FDA-Public Use
  Company Number: JP-ASTRAZENECA-2010SE08856

PATIENT
  Age: 68 Year
  Sex: Male
  Weight: 67 kg

DRUGS (2)
  1. IRESSA [Suspect]
     Indication: LUNG NEOPLASM MALIGNANT
     Route: 048
     Dates: start: 20060307, end: 20080801
  2. IRESSA [Suspect]
     Route: 048
     Dates: start: 20081107, end: 20090117

REACTIONS (2)
  - INTESTINAL PERFORATION [None]
  - LARGE INTESTINE PERFORATION [None]
